FAERS Safety Report 20891184 (Version 1)
Quarter: 2022Q2

REPORT INFORMATION
  Report Type: Spontaneous
  Country: CN (occurrence: CN)
  Receive Date: 20220530
  Receipt Date: 20220530
  Transmission Date: 20220721
  Serious: Yes (Other)
  Sender: FDA-Public Use
  Company Number: CN-PFIZER INC-202200757049

PATIENT
  Age: 59 Year
  Sex: Male
  Weight: 57 kg

DRUGS (3)
  1. METHOTREXATE [Suspect]
     Active Substance: METHOTREXATE
     Indication: Therapeutic procedure
     Dosage: 10 MG, 1X/DAY
     Route: 037
     Dates: start: 20220420, end: 20220420
  2. CYTARABINE [Suspect]
     Active Substance: CYTARABINE
     Indication: Therapeutic procedure
     Dosage: 50 MG, 1X/DAY
     Route: 037
     Dates: start: 20220420, end: 20220420
  3. ETOPOSIDE [Suspect]
     Active Substance: ETOPOSIDE
     Indication: Therapeutic procedure
     Dosage: 0.1 G, 1X/DAY
     Route: 041
     Dates: start: 20220420, end: 20220423

REACTIONS (1)
  - Granulocyte count decreased [Recovering/Resolving]

NARRATIVE: CASE EVENT DATE: 20220504
